FAERS Safety Report 23327491 (Version 1)
Quarter: 2023Q4

REPORT INFORMATION
  Report Type: Spontaneous
  Country: US (occurrence: None)
  Receive Date: 20231221
  Receipt Date: 20231221
  Transmission Date: 20240110
  Serious: Yes (Hospitalization)
  Sender: FDA-Public Use
  Company Number: None

PATIENT
  Sex: Female

DRUGS (23)
  1. TEZSPIRE [Suspect]
     Active Substance: TEZEPELUMAB-EKKO
     Indication: Asthma
     Dosage: 210 MG/1.9 M; SUBCUTANEOUS??INJECT 1 SYRINGE UNDER THE SKIN (SUBCUTANEOUS INJECTION)EVERY 4 WEEKS
     Route: 058
     Dates: start: 20230125
  2. ADVAIR HFA AER [Concomitant]
  3. ALBUTEROL AER HFA [Concomitant]
  4. ALBUTEROL NEB 0.083% [Concomitant]
  5. AZELASTINE SPR 0.1% [Concomitant]
  6. B COMPLEX CAP [Concomitant]
  7. BREO ELLIPTA INH 100-25 [Concomitant]
  8. CALCIUM CAR TAB 600MG [Concomitant]
  9. CLARITIN TAB 10MG [Concomitant]
  10. FAMOTIDINE TAB 20MG [Concomitant]
  11. FLONASE ALGY SPR 50MCG [Concomitant]
  12. LISINOPRIL TAB 2.5MG [Concomitant]
  13. METHOCARBAM TAB 750MG [Concomitant]
  14. METHYLPRED TAB 4MG [Concomitant]
  15. MONTELUKAST GRA 4GM [Concomitant]
  16. MULTIVITAMIN TAB WOMENS [Concomitant]
  17. NAPROXEN TAB 500MG [Concomitant]
  18. PREDNISONE TAB 20MG [Concomitant]
  19. PROPRANOLOL TAB 10MG [Concomitant]
  20. SPIRIVA CAP HANDIHLR [Concomitant]
  21. TRELEGY AER 100MCG [Concomitant]
  22. VITAMIN C TAB 500MG [Concomitant]
  23. ZYRTEC ALLGY CAP 10MG [Concomitant]

REACTIONS (2)
  - Drug ineffective [None]
  - Dyspnoea [None]
